FAERS Safety Report 16651816 (Version 1)
Quarter: 2019Q3

REPORT INFORMATION
  Report Type: Spontaneous
  Country: US (occurrence: US)
  Receive Date: 20190730
  Receipt Date: 20190730
  Transmission Date: 20191004
  Serious: Yes (Hospitalization)
  Sender: FDA-Public Use
  Company Number: None

PATIENT
  Age: 66 Year
  Sex: Female

DRUGS (3)
  1. HUMIRA [Suspect]
     Active Substance: ADALIMUMAB
     Indication: RHEUMATOID ARTHRITIS
     Dosage: ?          OTHER FREQUENCY:EVERY OTHER WEEK;?
     Route: 048
     Dates: start: 20180921
  2. MESALAMINE TAB 1.2 GM [Concomitant]
  3. HYDROCO/APAP TAB 7.5-325 [Concomitant]

REACTIONS (3)
  - Therapy cessation [None]
  - Dyspnoea [None]
  - Blood pressure increased [None]

NARRATIVE: CASE EVENT DATE: 20190524
